FAERS Safety Report 26128881 (Version 1)
Quarter: 2025Q4

REPORT INFORMATION
  Report Type: Spontaneous
  Country: GB (occurrence: GB)
  Receive Date: 20251208
  Receipt Date: 20251208
  Transmission Date: 20260118
  Serious: Yes (Hospitalization, Other)
  Sender: Kenvue
  Company Number: None

PATIENT
  Age: 10 Year

DRUGS (2)
  1. IBUPROFEN [Suspect]
     Active Substance: IBUPROFEN
     Indication: Product used for unknown indication
     Dosage: UNK
     Route: 065
  2. CALPOL [Suspect]
     Active Substance: ACETAMINOPHEN
     Indication: Oropharyngeal pain
     Dosage: 10 MILLILITER
     Route: 065

REACTIONS (5)
  - Lip blister [Not Recovered/Not Resolved]
  - Throat irritation [Unknown]
  - Oral discomfort [Unknown]
  - Lip swelling [Not Recovered/Not Resolved]
  - Mouth swelling [Recovered/Resolved with Sequelae]
